FAERS Safety Report 18212192 (Version 1)
Quarter: 2020Q3

REPORT INFORMATION
  Report Type: Spontaneous
  Country: IN (occurrence: IN)
  Receive Date: 20200831
  Receipt Date: 20200831
  Transmission Date: 20201103
  Serious: Yes (Hospitalization)
  Sender: FDA-Public Use
  Company Number: IN-STRIDES ARCOLAB LIMITED-2020SP009812

PATIENT
  Age: 61 Year
  Sex: Female

DRUGS (1)
  1. TENOFOVIR DISOPROXIL FUMARATE. [Suspect]
     Active Substance: TENOFOVIR DISOPROXIL FUMARATE
     Indication: ACUTE HEPATITIS B
     Dosage: 300 MILLIGRAM, QD
     Route: 048

REACTIONS (15)
  - Visual impairment [Recovered/Resolved]
  - Stevens-Johnson syndrome [Recovered/Resolved]
  - Foreign body sensation in eyes [Recovered/Resolved]
  - Rash maculo-papular [Recovered/Resolved]
  - Burning sensation [Recovered/Resolved]
  - Pyrexia [Recovered/Resolved]
  - Conjunctivitis [Recovered/Resolved]
  - Purulent discharge [Recovered/Resolved]
  - Rash erythematous [Recovered/Resolved]
  - Mouth ulceration [Recovered/Resolved]
  - Lip blister [Recovered/Resolved]
  - Ocular hyperaemia [Recovered/Resolved]
  - Dysphagia [Recovered/Resolved]
  - Secretion discharge [Recovered/Resolved]
  - Constipation [Recovered/Resolved]
